FAERS Safety Report 15325057 (Version 3)
Quarter: 2018Q4

REPORT INFORMATION
  Report Type: Spontaneous
  Country: BE (occurrence: BE)
  Receive Date: 20180828
  Receipt Date: 20181010
  Transmission Date: 20190204
  Serious: Yes (Other)
  Sender: FDA-Public Use
  Company Number: BE-TERSERA THERAPEUTICS LLC-TSR2018001975

PATIENT

DRUGS (3)
  1. ZOLADEX [Suspect]
     Active Substance: GOSERELIN ACETATE
     Indication: OVARIAN DISORDER
     Dosage: 3.6 MILLIGRAM, EVERY 4 WEEKS
     Route: 058
  2. ZOLADEX [Suspect]
     Active Substance: GOSERELIN ACETATE
     Indication: OESTROGEN RECEPTOR POSITIVE BREAST CANCER
  3. LETROZOLE. [Concomitant]
     Active Substance: LETROZOLE
     Indication: BREAST CANCER FEMALE
     Dosage: 1 DOSAGE FORM, QD
     Route: 048

REACTIONS (3)
  - Vaginal haemorrhage [Recovered/Resolved]
  - Drug ineffective [Unknown]
  - Oestradiol increased [Recovered/Resolved]

NARRATIVE: CASE EVENT DATE: 201807
